FAERS Safety Report 7308362-2 (Version None)
Quarter: 2011Q1

REPORT INFORMATION
  Report Type: 
  Country: None (occurrence: None)
  Receive Date: 20110223
  Receipt Date: 20110216
  Transmission Date: 20110831
  Serious: Yes (Other)
  Sender: FDA-Public Use
  Company Number: B0701392A

PATIENT
  Age: 33 Year
  Sex: Male

DRUGS (2)
  1. SYMBICORT [Concomitant]
     Dosage: 4PUFF PER DAY
     Route: 055
  2. VENTOLIN [Suspect]
     Indication: ASTHMA
     Route: 055

REACTIONS (1)
  - DEPENDENCE [None]
